FAERS Safety Report 8058117-9 (Version None)
Quarter: 2012Q1

REPORT INFORMATION
  Report Type: 
  Country: None (occurrence: None)
  Receive Date: 20120113
  Receipt Date: 20120111
  Transmission Date: 20120608
  Serious: Yes (Death, Other)
  Sender: FDA-Public Use
  Company Number: 2011SP058454

PATIENT
  Age: 43 Year
  Sex: Female

DRUGS (2)
  1. TEMOZOLOMIDE [Suspect]
     Indication: PRODUCT USED FOR UNKNOWN INDICATION
     Dates: start: 20060801
  2. TEMOZOLOMIDE [Suspect]
     Indication: PRODUCT USED FOR UNKNOWN INDICATION
     Dates: start: 20070201, end: 20100601

REACTIONS (6)
  - THROMBOCYTOPENIA [None]
  - SOFT TISSUE INFECTION [None]
  - OSTEOMYELITIS [None]
  - GLIOSARCOMA [None]
  - LEUKOPENIA [None]
  - TUMOUR NECROSIS [None]
